FAERS Safety Report 15074167 (Version 1)
Quarter: 2018Q2

REPORT INFORMATION
  Report Type: Spontaneous
  Country: PT (occurrence: PT)
  Receive Date: 20180627
  Receipt Date: 20180627
  Transmission Date: 20180711
  Serious: Yes (Other)
  Sender: FDA-Public Use
  Company Number: PT-ASTRAZENECA-2018SE80222

PATIENT
  Age: 67 Year
  Sex: Male

DRUGS (18)
  1. ATORVASTATIN [Concomitant]
     Active Substance: ATORVASTATIN
     Dosage: UNK
     Route: 065
  2. ALFUZOSIN HYDROCHLORIDE. [Concomitant]
     Active Substance: ALFUZOSIN HYDROCHLORIDE
     Dosage: UNK
     Route: 065
  3. SITAGLIPTIN PHOSPHATE (+) METFORMIN HYDROCHLORIDE [Interacting]
     Active Substance: METFORMIN HYDROCHLORIDE\SITAGLIPTIN PHOSPHATE
     Dosage: UNK
     Route: 048
  4. PACLITAXEL. [Interacting]
     Active Substance: PACLITAXEL
     Indication: LUNG ADENOCARCINOMA
     Dosage: 165 MG/M2, BIMONTHLY
     Route: 065
  5. TIOTROPIUM BROMIDE [Concomitant]
     Active Substance: TIOTROPIUM BROMIDE
     Dosage: UNK
     Route: 065
  6. SELENIUM [Concomitant]
     Active Substance: SELENIUM
     Dosage: 50.0UG/INHAL UNKNOWN
     Route: 048
  7. BUDESONIDE. [Suspect]
     Active Substance: BUDESONIDE
     Dosage: UNK
     Route: 055
  8. RETINOL [Concomitant]
     Active Substance: RETINOL
     Dosage: 1.5MG UNKNOWN
     Route: 048
  9. ZINC SULFATE [Concomitant]
     Active Substance: ZINC SULFATE\ZINC SULFATE ANHYDROUS
     Dosage: 5.5MG UNKNOWN
     Route: 048
  10. CARBOPLATIN. [Concomitant]
     Active Substance: CARBOPLATIN
     Indication: LUNG ADENOCARCINOMA
     Dosage: 275 MG/M2, BIMONTHLY
     Route: 065
  11. ASCORBIC ACID. [Concomitant]
     Active Substance: ASCORBIC ACID
     Dosage: 60.0MG UNKNOWN
     Route: 048
  12. PACLITAXEL. [Interacting]
     Active Substance: PACLITAXEL
     Indication: LUNG ADENOCARCINOMA
     Dosage: 165 MG/M2, BIMONTHLY
     Route: 065
  13. SILYBUM MARIANUM [Interacting]
     Active Substance: DIETARY SUPPLEMENT\HERBALS\MILK THISTLE
     Dosage: 300 MG, 3XDAY (TOTAL 13.5 MG OF SILYMARIN/DAY)
     Route: 048
  14. TOCOPHEROL [Concomitant]
     Active Substance: TOCOPHEROL
     Dosage: 20.0MG UNKNOWN
     Route: 048
  15. FORMOTEROL FUMARATE DIHYDRATE [Concomitant]
     Active Substance: FORMOTEROL FUMARATE DIHYDRATE
     Dosage: UNK
     Route: 065
  16. CHLORELLA VULGARIS [Interacting]
     Active Substance: CHLORELLA VULGARIS
     Route: 048
  17. TURMERIC [Interacting]
     Active Substance: HERBALS\TURMERIC
     Route: 048
  18. PACLITAXEL. [Interacting]
     Active Substance: PACLITAXEL
     Indication: LUNG ADENOCARCINOMA
     Dosage: 165 MG/M2, BIMONTHLY
     Route: 065

REACTIONS (2)
  - Drug-induced liver injury [Recovered/Resolved]
  - Drug interaction [Unknown]

NARRATIVE: CASE EVENT DATE: 201203
